FAERS Safety Report 4420923-7 (Version None)
Quarter: 2004Q3

REPORT INFORMATION
  Report Type: 
  Country: None (occurrence: None)
  Receive Date: 20040809
  Receipt Date: 20040728
  Transmission Date: 20050211
  Serious: Yes (Hospitalization)
  Sender: FDA-Public Use
  Company Number: GB-JNJFOC-20040707370

PATIENT
  Sex: Female

DRUGS (8)
  1. REMICADE [Suspect]
     Indication: RHEUMATOID ARTHRITIS
     Route: 042
  2. TRAMADOL HCL [Concomitant]
  3. METHOTREXATE [Concomitant]
  4. PREDNISOLONE [Concomitant]
  5. FOLIC ACID [Concomitant]
  6. LANZOPRAZOLE [Concomitant]
  7. PARACETAMOL [Concomitant]
  8. INDOMETHACIN 25MG CAP [Concomitant]

REACTIONS (2)
  - JOINT DISLOCATION [None]
  - PLATYBASIA [None]
